FAERS Safety Report 16442358 (Version 1)
Quarter: 2019Q2

REPORT INFORMATION
  Report Type: Report from Study
  Country: None (occurrence: US)
  Receive Date: 20190617
  Receipt Date: 20190617
  Transmission Date: 20190711
  Serious: No
  Sender: FDA-Public Use
  Company Number: US-US WORLDMEDS, LLC-USW201904-000749

PATIENT
  Age: 74 Year
  Sex: Male

DRUGS (12)
  1. SINEMET [Concomitant]
     Active Substance: CARBIDOPA\LEVODOPA
  2. CBD OIL [Concomitant]
     Active Substance: CANNABIDIOL\HERBALS
  3. GOCOVRI [Concomitant]
     Active Substance: AMANTADINE
  4. APOKYN [Suspect]
     Active Substance: APOMORPHINE HYDROCHLORIDE
     Route: 058
     Dates: start: 20190411
  5. MEMANTINE. [Concomitant]
     Active Substance: MEMANTINE
  6. TAMSULOSIN [Concomitant]
     Active Substance: TAMSULOSIN
  7. ALLOPURINOL. [Concomitant]
     Active Substance: ALLOPURINOL
  8. FENOFIBRATE. [Concomitant]
     Active Substance: FENOFIBRATE
  9. KLONOPIN [Concomitant]
     Active Substance: CLONAZEPAM
  10. APOKYN [Suspect]
     Active Substance: APOMORPHINE HYDROCHLORIDE
     Indication: PARKINSON^S DISEASE
     Route: 058
     Dates: start: 20190411
  11. ASA [Concomitant]
     Active Substance: ASPIRIN
  12. LASIX [Concomitant]
     Active Substance: FUROSEMIDE

REACTIONS (4)
  - Hyperhidrosis [Recovered/Resolved]
  - Dizziness [Recovered/Resolved]
  - Pallor [Recovered/Resolved]
  - Blood pressure systolic decreased [Recovered/Resolved]

NARRATIVE: CASE EVENT DATE: 20190411
